FAERS Safety Report 6583697-X (Version None)
Quarter: 2010Q1

REPORT INFORMATION
  Report Type: 
  Country: None (occurrence: None)
  Receive Date: 20100212
  Receipt Date: 20100212
  Transmission Date: 20100710
  Serious: Yes (Death)
  Sender: FDA-Public Use
  Company Number: None

PATIENT
  Age: 37 Year
  Sex: Female
  Weight: 55 kg

DRUGS (4)
  1. TRUVADA [Suspect]
     Indication: HIV INFECTION
     Dosage: 500 MILLIGRAMS QD ORAL
     Route: 048
     Dates: start: 20090927, end: 20091215
  2. EFAVIRENZ [Suspect]
     Indication: HIV INFECTION
     Dosage: 600 MILLIGRAMS QD ORAL
     Route: 048
     Dates: start: 20090927, end: 20091215
  3. RIFINA (RIFAMPICIN/ISONIAZID) [Concomitant]
  4. SEPTRIN [Concomitant]

REACTIONS (3)
  - BLOOD SODIUM DECREASED [None]
  - HAEMOGLOBIN DECREASED [None]
  - HEADACHE [None]
